FAERS Safety Report 5872181-4 (Version None)
Quarter: 2008Q3

REPORT INFORMATION
  Report Type: 
  Country: None (occurrence: None)
  Receive Date: 20080904
  Receipt Date: 20080821
  Transmission Date: 20090109
  Serious: Yes (Hospitalization, Other)
  Sender: FDA-Public Use
  Company Number: PIR#  0808026-C

PATIENT
  Age: 71 Year
  Sex: Female

DRUGS (1)
  1. HEPARIN SODIUM [Suspect]

REACTIONS (3)
  - INJECTION SITE DISCOLOURATION [None]
  - POST PROCEDURAL HAEMATOMA [None]
  - THYROID CANCER [None]
